FAERS Safety Report 6270381 (Version 19)
Quarter: 2013Q2

REPORT INFORMATION
  Report Type: Spontaneous
  Country: US (occurrence: US)
  Receive Date: 20070326
  Receipt Date: 20130408
  Transmission Date: 20140414
  Serious: Yes (Death, Hospitalization, Other)
  Sender: FDA-Public Use
  Company Number: PHEH2007US03192

PATIENT
  Age: 43 Year
  Sex: Female

DRUGS (25)
  1. ZOMETA [Suspect]
  2. VERSED [Concomitant]
  3. FENTANYL [Concomitant]
  4. PROPOFOL [Concomitant]
  5. TESSALON [Concomitant]
  6. AVELOX [Concomitant]
  7. ALBUTEROL [Concomitant]
  8. PROZAC [Concomitant]
  9. MAXZIDE [Concomitant]
  10. LIPITOR                                 /NET/ [Concomitant]
  11. ZOLOFT (SERTRALINE) [Concomitant]
  12. ZITHROMAX ^PFIZER^ [Concomitant]
  13. CELEXA [Concomitant]
  14. LORAZEPAM [Concomitant]
  15. ZOFRAN [Concomitant]
  16. VICODIN [Concomitant]
  17. COMPAZINE [Concomitant]
  18. PREVACID [Concomitant]
  19. OXYCONTIN [Concomitant]
     Dosage: 10 MG, BID
  20. COLACE [Concomitant]
     Dosage: 100 MG, BID
  21. OXYCODONE [Concomitant]
     Dosage: 5 MG, UNK
  22. PRILOSEC [Concomitant]
     Dosage: 200 MG, UNK
  23. TAMOXIFEN [Concomitant]
  24. PHENERGAN [Concomitant]
     Dosage: 25 MG, UNK
  25. IBUPROFEN [Concomitant]

REACTIONS (97)
  - Blood cholesterol increased [Unknown]
  - Osteonecrosis of jaw [Unknown]
  - General physical health deterioration [Unknown]
  - Pain [Unknown]
  - Anxiety [Unknown]
  - Decreased interest [Unknown]
  - Oral pain [Unknown]
  - Bone disorder [Unknown]
  - Exostosis [Unknown]
  - Inflammation of wound [Unknown]
  - Periodontitis [Unknown]
  - Osteomyelitis [Recovered/Resolved]
  - Mastication disorder [Unknown]
  - Dental caries [Unknown]
  - Gingival pain [Unknown]
  - Pain in jaw [Unknown]
  - Dental necrosis [Unknown]
  - Wound dehiscence [Unknown]
  - Invasive ductal breast carcinoma [Unknown]
  - Borderline personality disorder [Unknown]
  - Depression [Unknown]
  - Sleep apnoea syndrome [Unknown]
  - Dyspnoea [Unknown]
  - Lumbar spinal stenosis [Unknown]
  - Arthralgia [Unknown]
  - Spinal osteoarthritis [Unknown]
  - Abdominal discomfort [Unknown]
  - Seroma [Unknown]
  - Pulmonary embolism [Unknown]
  - Hepatic cyst [Unknown]
  - Intraosseous angioma [Unknown]
  - Gallbladder polyp [Unknown]
  - Intervertebral disc degeneration [Unknown]
  - Intervertebral disc protrusion [Unknown]
  - Spondylolisthesis [Unknown]
  - Ileus [Unknown]
  - Atelectasis [Unknown]
  - Neoplasm progression [Unknown]
  - Malignant neoplasm progression [Unknown]
  - Metastases to lymph nodes [Unknown]
  - Lymphadenopathy [Unknown]
  - Metastases to lung [Unknown]
  - Pulmonary mass [Unknown]
  - Metastases to bone [Unknown]
  - Hepatic steatosis [Unknown]
  - Pleural effusion [Unknown]
  - Myalgia [Unknown]
  - Constipation [Unknown]
  - Epistaxis [Unknown]
  - Back pain [Recovering/Resolving]
  - Coronary artery disease [Unknown]
  - Angina pectoris [Unknown]
  - Dizziness [Unknown]
  - Asthenia [Unknown]
  - Fatigue [Unknown]
  - Anaemia [Unknown]
  - Herpes zoster [Unknown]
  - Blood pressure decreased [Unknown]
  - Stress fracture [Unknown]
  - Injury [Unknown]
  - Hypoaesthesia [Unknown]
  - Paraesthesia [Unknown]
  - Sciatica [Unknown]
  - Muscle spasms [Unknown]
  - Spinal column stenosis [Unknown]
  - Nausea [Unknown]
  - Diarrhoea [Unknown]
  - Sinus headache [Unknown]
  - Intraductal proliferative breast lesion [Unknown]
  - Migraine [Unknown]
  - Restless legs syndrome [Unknown]
  - Pancreatitis acute [Unknown]
  - Electrolyte imbalance [Unknown]
  - Rectal haemorrhage [Unknown]
  - Weight decreased [Unknown]
  - Ascites [Unknown]
  - Gastrooesophageal reflux disease [Unknown]
  - Large intestinal ulcer [Unknown]
  - Impaired gastric emptying [Unknown]
  - Phlebolith [Unknown]
  - Irritable bowel syndrome [Unknown]
  - Biliary tract disorder [Unknown]
  - Dysphagia [Unknown]
  - Oedema peripheral [Unknown]
  - Anaphylactic reaction [Unknown]
  - Pancreatic mass [Unknown]
  - Pyloric stenosis [Unknown]
  - Fall [Unknown]
  - Ligament sprain [Unknown]
  - Pain in extremity [Unknown]
  - Musculoskeletal discomfort [Unknown]
  - Intervertebral disc space narrowing [Unknown]
  - Intervertebral disc disorder [Unknown]
  - Tinnitus [Unknown]
  - Flank pain [Unknown]
  - Death [Fatal]
  - Blood thyroid stimulating hormone decreased [Unknown]
